APPROVED DRUG PRODUCT: DARTISLA ODT
Active Ingredient: GLYCOPYRROLATE
Strength: 1.7MG
Dosage Form/Route: TABLET, ORALLY DISINTEGRATING;ORAL
Application: N215019 | Product #001
Applicant: EDENBRIDGE PHARMACEUTICALS LLC
Approved: Dec 16, 2021 | RLD: Yes | RS: No | Type: DISCN